FAERS Safety Report 21518303 (Version 1)
Quarter: 2022Q4

REPORT INFORMATION
  Report Type: Report from Study
  Country: US (occurrence: US)
  Receive Date: 20221028
  Receipt Date: 20221028
  Transmission Date: 20230113
  Serious: Yes (Other)
  Sender: FDA-Public Use
  Company Number: US-TAKEDA-US201829648

PATIENT
  Age: 58 Year
  Sex: Female
  Weight: 139 kg

DRUGS (32)
  1. PARATHYROID HORMONE [Suspect]
     Active Substance: PARATHYROID HORMONE
     Indication: Hypoparathyroidism
     Dosage: 50 MICROGRAM, QD
     Route: 065
     Dates: start: 20160708, end: 20180617
  2. PARATHYROID HORMONE [Suspect]
     Active Substance: PARATHYROID HORMONE
     Indication: Hypoparathyroidism
     Dosage: 50 MICROGRAM, QD
     Route: 065
     Dates: start: 20160708, end: 20180617
  3. PARATHYROID HORMONE [Suspect]
     Active Substance: PARATHYROID HORMONE
     Indication: Hypoparathyroidism
     Dosage: 50 MICROGRAM, QD
     Route: 065
     Dates: start: 20160708, end: 20180617
  4. PARATHYROID HORMONE [Suspect]
     Active Substance: PARATHYROID HORMONE
     Dosage: 75 MICROGRAM, QD
     Route: 065
     Dates: start: 20180618, end: 20190823
  5. PARATHYROID HORMONE [Suspect]
     Active Substance: PARATHYROID HORMONE
     Dosage: 75 MICROGRAM, QD
     Route: 065
     Dates: start: 20180618, end: 20190823
  6. PARATHYROID HORMONE [Suspect]
     Active Substance: PARATHYROID HORMONE
     Dosage: 75 MICROGRAM, QD
     Route: 065
     Dates: start: 20180618, end: 20190823
  7. PARATHYROID HORMONE [Suspect]
     Active Substance: PARATHYROID HORMONE
     Dosage: 100 MICROGRAM, QD
     Route: 065
     Dates: start: 20190824, end: 20190916
  8. PARATHYROID HORMONE [Suspect]
     Active Substance: PARATHYROID HORMONE
     Dosage: 100 MICROGRAM, QD
     Route: 065
     Dates: start: 20190824, end: 20190916
  9. PARATHYROID HORMONE [Suspect]
     Active Substance: PARATHYROID HORMONE
     Dosage: 100 MICROGRAM, QD
     Route: 065
     Dates: start: 20190824, end: 20190916
  10. LEVOTHYROXINE [Concomitant]
     Active Substance: LEVOTHYROXINE
     Indication: Hypothyroidism
     Dosage: UNK
     Route: 048
     Dates: start: 19700301
  11. TRYPTOPHAN [Concomitant]
     Active Substance: TRYPTOPHAN
     Dosage: UNK
     Route: 048
     Dates: start: 2010, end: 2019
  12. LUTEIN [Concomitant]
     Active Substance: LUTEIN
     Dosage: UNK
     Route: 048
     Dates: start: 2010, end: 2019
  13. ZINC [Concomitant]
     Active Substance: ZINC
     Indication: Vitamin supplementation
     Dosage: UNK
     Route: 048
     Dates: start: 2010
  14. FOLIC ACID [Concomitant]
     Active Substance: FOLIC ACID
     Indication: Vitamin supplementation
     Dosage: UNK
     Route: 048
     Dates: start: 2010, end: 2019
  15. RIFAXIMIN [Concomitant]
     Active Substance: RIFAXIMIN
     Indication: Breast cancer
     Dosage: UNK
     Route: 048
     Dates: start: 201708, end: 202001
  16. PROBIOTICS NOS [Concomitant]
     Active Substance: PROBIOTICS NOS
     Indication: Irritable bowel syndrome
     Dosage: UNK
     Route: 048
     Dates: start: 201801
  17. BERBERINE [Concomitant]
     Active Substance: BERBERINE
     Indication: Gastrointestinal bacterial overgrowth
     Dosage: UNK
     Route: 048
     Dates: start: 201801, end: 2019
  18. L-glutamine [Concomitant]
     Indication: Gastrointestinal bacterial overgrowth
     Dosage: UNK
     Route: 048
     Dates: start: 201801, end: 2018
  19. XYLOMETAZOLINE HYDROCHLORIDE [Concomitant]
     Active Substance: XYLOMETAZOLINE HYDROCHLORIDE
     Indication: Hypersensitivity
     Dosage: UNK
     Route: 048
     Dates: start: 20200110, end: 202003
  20. CHLORHEXIDINE GLUCONATE [Concomitant]
     Active Substance: CHLORHEXIDINE GLUCONATE
     Indication: Mouth ulceration
     Dosage: UNK
     Route: 048
     Dates: start: 20200511, end: 2022
  21. DICLOFENAC [Concomitant]
     Active Substance: DICLOFENAC
     Indication: Arthritis
     Dosage: UNK
     Route: 061
     Dates: start: 20200511, end: 2022
  22. VITAMIN B [Concomitant]
     Active Substance: VITAMIN B
     Dosage: UNK
     Route: 048
     Dates: start: 2016
  23. LINZESS [Concomitant]
     Active Substance: LINACLOTIDE
     Indication: Irritable bowel syndrome
     Dosage: UNK
     Route: 048
     Dates: start: 20200709, end: 20200720
  24. RALOXIFENE [Concomitant]
     Active Substance: RALOXIFENE
     Indication: Breast cancer
     Dosage: UNK
     Route: 048
     Dates: start: 202012, end: 2021
  25. FAMOTIDINE [Concomitant]
     Active Substance: FAMOTIDINE
     Indication: Gastritis
     Dosage: UNK
     Route: 048
     Dates: start: 202012, end: 2021
  26. ALLOPURINOL [Concomitant]
     Active Substance: ALLOPURINOL
     Indication: Gout
     Dosage: UNK
     Route: 048
     Dates: start: 202105, end: 202106
  27. ZITHROMAX [Concomitant]
     Active Substance: AZITHROMYCIN DIHYDRATE
     Indication: Sinusitis
     Dosage: UNK
     Route: 048
     Dates: start: 20220315, end: 20220320
  28. ANUCORT-HC [Concomitant]
     Active Substance: HYDROCORTISONE ACETATE
     Indication: Haemorrhoids
     Dosage: UNK
     Route: 061
     Dates: start: 202206, end: 202207
  29. PLAQUENIL [Concomitant]
     Active Substance: HYDROXYCHLOROQUINE SULFATE
     Indication: Arthralgia
     Dosage: UNK
     Route: 048
     Dates: start: 20220520
  30. VITAMIN C [Concomitant]
     Active Substance: ASCORBIC ACID
     Indication: Nasal congestion
     Dosage: UNK
     Route: 048
     Dates: start: 20220812
  31. ELDERBERRY PLUS [Concomitant]
     Indication: Nasal congestion
     Dosage: UNK
     Route: 048
     Dates: start: 20220812, end: 20220812
  32. POTASSIUM BICARBONATE [Concomitant]
     Active Substance: POTASSIUM BICARBONATE
     Indication: Nasal congestion
     Dosage: UNK
     Route: 048
     Dates: start: 20220812, end: 202208

REACTIONS (1)
  - Malignant melanoma [Recovering/Resolving]

NARRATIVE: CASE EVENT DATE: 20170101
